FAERS Safety Report 24979249 (Version 2)
Quarter: 2025Q1

REPORT INFORMATION
  Report Type: Spontaneous
  Country: JP (occurrence: JP)
  Receive Date: 20250218
  Receipt Date: 20250220
  Transmission Date: 20250409
  Serious: Yes (Death, Hospitalization, Other)
  Sender: MERCK SHARP & DOHME LLC
  Company Number: JP-MSD-2305JPN000668J

PATIENT
  Age: 71 Year
  Sex: Male

DRUGS (4)
  1. KEYTRUDA [Suspect]
     Active Substance: PEMBROLIZUMAB
     Indication: Lung neoplasm malignant
  2. KEYTRUDA [Suspect]
     Active Substance: PEMBROLIZUMAB
     Indication: Lung neoplasm malignant
     Route: 041
  3. PACLITAXEL [Suspect]
     Active Substance: PACLITAXEL
     Indication: Small cell lung cancer metastatic
     Route: 065
  4. CARBOPLATIN [Suspect]
     Active Substance: CARBOPLATIN
     Indication: Small cell lung cancer metastatic
     Route: 065

REACTIONS (3)
  - Septic shock [Fatal]
  - Cholangitis sclerosing [Recovering/Resolving]
  - Liver abscess [Unknown]
